FAERS Safety Report 8133552-9 (Version None)
Quarter: 2012Q1

REPORT INFORMATION
  Report Type: 
  Country: None (occurrence: None)
  Receive Date: 20120213
  Receipt Date: 20120210
  Transmission Date: 20120608
  Serious: Yes (Other)
  Sender: FDA-Public Use
  Company Number: US-PFIZER INC-2012037179

PATIENT
  Sex: Female
  Weight: 89.342 kg

DRUGS (1)
  1. ZOLOFT [Suspect]
     Indication: DEPRESSION
     Dosage: UNK
     Route: 048

REACTIONS (2)
  - SCHIZOAFFECTIVE DISORDER [None]
  - HYPERSENSITIVITY [None]
